FAERS Safety Report 22306832 (Version 2)
Quarter: 2023Q2

REPORT INFORMATION
  Report Type: Spontaneous
  Country: CA (occurrence: CA)
  Receive Date: 20230511
  Receipt Date: 20230512
  Transmission Date: 20230722
  Serious: Yes (Other)
  Sender: FDA-Public Use
  Company Number: CA-UCBSA-2023023840

PATIENT
  Age: 80 Year
  Sex: Male
  Weight: 68 kg

DRUGS (6)
  1. NEUPRO [Suspect]
     Active Substance: ROTIGOTINE
     Indication: Parkinson^s disease
     Dosage: 2 MILLIGRAM, ONCE DAILY (QD), 7 DAYS
     Route: 062
  2. PRAMIPEXOLE DIHYDROCHLORIDE [Concomitant]
     Active Substance: PRAMIPEXOLE DIHYDROCHLORIDE
     Indication: Parkinson^s disease
     Dosage: 1 MILLIGRAM, 3X/DAY (TID)
     Route: 048
  3. PRAMIPEXOLE DIHYDROCHLORIDE [Concomitant]
     Active Substance: PRAMIPEXOLE DIHYDROCHLORIDE
     Dosage: 1 MILLIGRAM, 3X/DAY (TID)
     Route: 048
  4. SELEGILINE [Concomitant]
     Active Substance: SELEGILINE
     Indication: Parkinson^s disease
     Dosage: 5 MILLIGRAM, 2X/DAY (BID)
     Route: 048
  5. SINEMET [Concomitant]
     Active Substance: CARBIDOPA\LEVODOPA
     Indication: Parkinson^s disease
     Dosage: UNK, 5X/DAY
     Route: 048
  6. SINEMET [Concomitant]
     Active Substance: CARBIDOPA\LEVODOPA
     Dosage: UNK, 3X/DAY (TID)
     Route: 048

REACTIONS (1)
  - Parkinson^s disease [Recovered/Resolved]
